FAERS Safety Report 16377473 (Version 1)
Quarter: 2019Q2

REPORT INFORMATION
  Report Type: Spontaneous
  Country: US (occurrence: US)
  Receive Date: 20190531
  Receipt Date: 20190531
  Transmission Date: 20190711
  Serious: No
  Sender: FDA-Public Use
  Company Number: US-PFIZER INC-2018386061

PATIENT
  Age: 59 Year
  Sex: Female
  Weight: 109 kg

DRUGS (2)
  1. FLECTOR [Suspect]
     Active Substance: DICLOFENAC EPOLAMINE
     Indication: ARTHRALGIA
     Dosage: 1 DF, 1X/DAY
     Route: 062
     Dates: start: 2019
  2. FLECTOR [Suspect]
     Active Substance: DICLOFENAC EPOLAMINE
     Indication: BACK PAIN
     Dosage: 1 DF, 2X/DAY (1 PATCH EVERY 12 HOURS)
     Route: 062
     Dates: start: 201809

REACTIONS (3)
  - Intentional product misuse [Unknown]
  - Product dispensing error [Unknown]
  - Malaise [Unknown]

NARRATIVE: CASE EVENT DATE: 201809
